FAERS Safety Report 4442879-3 (Version None)
Quarter: 2004Q3

REPORT INFORMATION
  Report Type: 
  Country: None (occurrence: None)
  Receive Date: 20040907
  Receipt Date: 20040907
  Transmission Date: 20050211
  Serious: Yes (Other)
  Sender: FDA-Public Use
  Company Number: None

PATIENT
  Age: 82 Year
  Sex: Male
  Weight: 74 kg

DRUGS (10)
  1. ZYVOX [Suspect]
     Indication: STAPHYLOCOCCAL INFECTION
     Dosage: 600 MG PO BID
     Route: 048
     Dates: start: 20040713, end: 20040727
  2. ZYVOX [Suspect]
     Indication: URINARY TRACT INFECTION
     Dosage: 600 MG PO BID
     Route: 048
     Dates: start: 20040713, end: 20040727
  3. GATIFLOXACIN [Concomitant]
  4. CLINDAMYCIN [Concomitant]
  5. ASCORBIC ACID [Concomitant]
  6. SIMVASTATIN [Concomitant]
  7. WARFARIN SODIUM [Concomitant]
  8. DIGOXIN [Concomitant]
  9. METOPROLOL [Concomitant]
  10. RANITIDINE [Concomitant]

REACTIONS (2)
  - ANAEMIA [None]
  - THROMBOCYTOPENIA [None]
